FAERS Safety Report 16963737 (Version 1)
Quarter: 2019Q4

REPORT INFORMATION
  Report Type: Spontaneous
  Country: US (occurrence: US)
  Receive Date: 20191025
  Receipt Date: 20191025
  Transmission Date: 20200122
  Serious: No
  Sender: FDA-Public Use
  Company Number: US-BIOMARINAP-US-2019-126413

PATIENT

DRUGS (1)
  1. KUVAN [Suspect]
     Active Substance: SAPROPTERIN DIHYDROCHLORIDE
     Indication: PRODUCT USED FOR UNKNOWN INDICATION
     Dosage: 100 MILLIGRAM, QD
     Route: 048
     Dates: start: 201810

REACTIONS (1)
  - Rhinorrhoea [Unknown]
